FAERS Safety Report 11950837 (Version 3)
Quarter: 2017Q3

REPORT INFORMATION
  Report Type: Spontaneous
  Country: US (occurrence: US)
  Receive Date: 20160126
  Receipt Date: 20170726
  Transmission Date: 20171127
  Serious: Yes (Hospitalization)
  Sender: FDA-Public Use
  Company Number: US-EMD SERONO-238071K06USA

PATIENT
  Age: 50 Year
  Sex: Female

DRUGS (11)
  1. XANAX [Concomitant]
     Active Substance: ALPRAZOLAM
     Indication: ANXIETY
     Route: 048
     Dates: start: 1990
  2. REBIF [Suspect]
     Active Substance: INTERFERON BETA-1A
     Indication: MULTIPLE SCLEROSIS
     Route: 058
     Dates: start: 20060609
  3. CYMBALTA [Concomitant]
     Active Substance: DULOXETINE HYDROCHLORIDE
     Indication: BACK PAIN
  4. DETROL LA [Concomitant]
     Active Substance: TOLTERODINE TARTRATE
     Indication: URINARY INCONTINENCE
     Route: 048
     Dates: start: 2005
  5. OXYCONTIN [Concomitant]
     Active Substance: OXYCODONE HYDROCHLORIDE
     Indication: BACK PAIN
     Route: 048
     Dates: start: 2005
  6. ZANAFLEX [Concomitant]
     Active Substance: TIZANIDINE HYDROCHLORIDE
     Indication: MUSCLE SPASMS
     Route: 048
  7. CYMBALTA [Concomitant]
     Active Substance: DULOXETINE HYDROCHLORIDE
     Indication: DEPRESSION
     Dosage: AT BED TIME
     Route: 048
     Dates: start: 2005
  8. OXYCONTIN [Concomitant]
     Active Substance: OXYCODONE HYDROCHLORIDE
     Indication: PAIN IN EXTREMITY
  9. SOMA [Concomitant]
     Active Substance: CARISOPRODOL
     Indication: MUSCLE SPASMS
     Route: 048
     Dates: start: 1995
  10. PROVIGIL [Concomitant]
     Active Substance: MODAFINIL
     Indication: FATIGUE
     Route: 048
     Dates: start: 2005
  11. RISPERDAL [Concomitant]
     Active Substance: RISPERIDONE
     Indication: AFFECTIVE DISORDER
     Dosage: AT BED TIME
     Route: 048
     Dates: start: 2005

REACTIONS (9)
  - Osteonecrosis [Recovering/Resolving]
  - Musculoskeletal disorder [Not Recovered/Not Resolved]
  - Post procedural complication [Not Recovered/Not Resolved]
  - Gait disturbance [Not Recovered/Not Resolved]
  - Road traffic accident [Unknown]
  - Lower limb fracture [Not Recovered/Not Resolved]
  - Dysgraphia [Not Recovered/Not Resolved]
  - Drug dose omission [Recovered/Resolved]
  - Post procedural contusion [Unknown]

NARRATIVE: CASE EVENT DATE: 200803
